FAERS Safety Report 9566763 (Version 1)
Quarter: 2013Q3

REPORT INFORMATION
  Report Type: Spontaneous
  Country: US (occurrence: US)
  Receive Date: 20130930
  Receipt Date: 20130930
  Transmission Date: 20140515
  Serious: No
  Sender: FDA-Public Use
  Company Number: US-AMGEN-USASP2012061753

PATIENT
  Age: 64 Year
  Sex: Male
  Weight: 81.63 kg

DRUGS (4)
  1. ENBREL [Suspect]
     Indication: PRODUCT USED FOR UNKNOWN INDICATION
     Dosage: 50 MG, QWK
     Route: 058
  2. SYNTHROID [Concomitant]
     Dosage: 200 MUG, UNK
  3. PREDNISONE [Concomitant]
     Dosage: 1 MG, UNK
  4. LISINOPRIL + HIDROCLOROTIAZIDA [Concomitant]
     Dosage: 20-12.5

REACTIONS (1)
  - Arthralgia [Unknown]
